FAERS Safety Report 5781519-8 (Version None)
Quarter: 2008Q2

REPORT INFORMATION
  Report Type: 
  Country: None (occurrence: None)
  Receive Date: 20080623
  Receipt Date: 20070406
  Transmission Date: 20081010
  Serious: No
  Sender: FDA-Public Use
  Company Number: US-ASTRAZENECA-2007UW06871

PATIENT
  Age: 37 Year
  Sex: Male
  Weight: 70.3 kg

DRUGS (1)
  1. ENTOCORT EC [Suspect]
     Indication: COLITIS ULCERATIVE
     Route: 048
     Dates: start: 20070405

REACTIONS (1)
  - HAEMATOCHEZIA [None]
